FAERS Safety Report 13801271 (Version 2)
Quarter: 2017Q4

REPORT INFORMATION
  Report Type: Spontaneous
  Country: JP (occurrence: JP)
  Receive Date: 20170727
  Receipt Date: 20171024
  Transmission Date: 20180320
  Serious: Yes (Death, Other)
  Sender: FDA-Public Use
  Company Number: JP-JNJFOC-20170720588

PATIENT
  Age: 62 Year
  Sex: Female
  Weight: 60.2 kg

DRUGS (2)
  1. XARELTO [Suspect]
     Active Substance: RIVAROXABAN
     Indication: PULMONARY EMBOLISM
     Route: 048
     Dates: start: 20170703, end: 20170708
  2. XARELTO [Suspect]
     Active Substance: RIVAROXABAN
     Indication: PULMONARY EMBOLISM
     Route: 048
     Dates: start: 20170709, end: 20170715

REACTIONS (2)
  - Breast cancer [Fatal]
  - Melaena [Recovered/Resolved]

NARRATIVE: CASE EVENT DATE: 20170707
